FAERS Safety Report 24982880 (Version 1)
Quarter: 2025Q1

REPORT INFORMATION
  Report Type: Spontaneous
  Country: FR (occurrence: FR)
  Receive Date: 20250218
  Receipt Date: 20250218
  Transmission Date: 20250409
  Serious: Yes (Hospitalization)
  Sender: PFIZER
  Company Number: None

PATIENT
  Age: 63 Year
  Sex: Female
  Weight: 50 kg

DRUGS (4)
  1. CARBOPLATIN [Suspect]
     Active Substance: CARBOPLATIN
     Indication: Bronchial carcinoma
     Route: 042
     Dates: start: 20250106, end: 20250106
  2. PEMETREXED [Suspect]
     Active Substance: PEMETREXED
     Indication: Bronchial carcinoma
     Route: 042
     Dates: start: 20250106, end: 20250106
  3. AMIVANTAMAB [Suspect]
     Active Substance: AMIVANTAMAB
     Indication: Bronchial carcinoma
     Route: 042
     Dates: start: 20250106, end: 20250106
  4. AMIVANTAMAB [Suspect]
     Active Substance: AMIVANTAMAB
     Route: 042
     Dates: start: 20250107, end: 20250107

REACTIONS (4)
  - Diarrhoea [Recovered/Resolved]
  - Neutropenia [Recovered/Resolved]
  - Rash [Recovered/Resolved]
  - Colitis [Recovering/Resolving]

NARRATIVE: CASE EVENT DATE: 20250110
